FAERS Safety Report 8936790 (Version 4)
Quarter: 2013Q1

REPORT INFORMATION
  Report Type: Report from Study
  Country: DE (occurrence: DE)
  Receive Date: 20121130
  Receipt Date: 20130215
  Transmission Date: 20140127
  Serious: Yes (Death, Other)
  Sender: FDA-Public Use
  Company Number: DE-OTSUKA-EU-2012-10233

PATIENT
  Sex: Male
  Weight: 175 kg

DRUGS (41)
  1. SAMSCA [Suspect]
     Indication: INAPPROPRIATE ANTIDIURETIC HORMONE SECRETION
     Dosage: 7.5 MG MILLIGRAM(S), QOD
     Route: 050
     Dates: start: 20120217, end: 20120220
  2. SAMSCA [Suspect]
     Dosage: 15 MG MILLIGRAM(S), QOD
     Route: 050
     Dates: start: 20120315, end: 201204
  3. NACL [Concomitant]
     Indication: HYPONATRAEMIA
     Dosage: 1.5 G GRAM(S), DAILY DOSE
     Route: 048
     Dates: start: 20120215, end: 20120215
  4. SALINE [Concomitant]
     Dosage: 77 MMOL/L, UNKNOWN
     Dates: start: 20120218, end: 20120220
  5. CEFAZOLINE [Concomitant]
     Indication: ERYSIPELAS
     Dosage: 2 G GRAM(S), DAILY DOSE
     Route: 042
     Dates: start: 20120210, end: 20120219
  6. FUROSEMIDE [Concomitant]
     Indication: RENAL FAILURE ACUTE
     Dosage: 60 MG MILLIGRAM(S), DAILY DOSE
     Route: 042
     Dates: start: 20120211, end: 20120212
  7. FUROSEMIDE [Concomitant]
     Dosage: 40 MG MILLIGRAM(S), DAILY DOSE
     Route: 042
     Dates: start: 20120213, end: 20120215
  8. PHENPROCOUMON [Concomitant]
     Indication: THROMBOSIS PROPHYLAXIS
     Dosage: 1 DF DOSAGE FORM, UNKNOWN
     Route: 048
  9. KALINOR [Concomitant]
     Indication: HYPOKALAEMIA
     Dosage: 80 MMOL/L, DAILY DOSE
     Route: 048
     Dates: start: 20120213, end: 20120213
  10. CALCITROL [Concomitant]
     Indication: HYPERPARATHYROIDISM SECONDARY
     Dosage: 0.25 ?G MICROGRAM(S), DAILY DOSE
     Route: 048
     Dates: start: 20120216
  11. PANTOPRAZOLE [Concomitant]
     Indication: PROPHYLAXIS AGAINST GASTROINTESTINAL ULCER
     Dosage: 40 MG MILLIGRAM(S), DAILY DOSE
     Route: 048
     Dates: start: 20120211, end: 20120215
  12. RAMIPRIL [Concomitant]
     Indication: CARDIAC FAILURE CONGESTIVE
     Dosage: 1.25 MG MILLIGRAM(S), DAILY DOSE
     Route: 048
     Dates: start: 20120211, end: 20120320
  13. RAMIPRIL [Concomitant]
     Dosage: 5 MG MILLIGRAM(S), DAILY DOSE
     Route: 048
     Dates: start: 20120321, end: 20120326
  14. RAMIPRIL [Concomitant]
     Dosage: 2.5 MG MILLIGRAM(S), DAILY DOSE
     Route: 048
     Dates: start: 20120327, end: 20120405
  15. RAMIPRIL [Concomitant]
     Dosage: 1.25 MG MILLIGRAM(S), DAILY DOSE
     Route: 048
     Dates: start: 20120405
  16. CARVEDILOL [Concomitant]
     Indication: CARDIAC FAILURE CONGESTIVE
     Dosage: 25 MG MILLIGRAM(S), DAILY DOSE
     Route: 048
     Dates: start: 20120211
  17. AMIODARONE [Concomitant]
     Indication: CARDIOVASCULAR EVENT PROPHYLAXIS
     Dosage: 200 MG MILLIGRAM(S), DAILY DOSE
     Route: 048
     Dates: start: 20120211
  18. TORASEMIDE [Concomitant]
     Indication: RENAL FAILURE CHRONIC
     Dosage: 10 MG MILLIGRAM(S), DAILY DOSE
     Route: 048
     Dates: start: 20120217, end: 20120217
  19. TORASEMIDE [Concomitant]
     Dosage: 5 MG MILLIGRAM(S), DAILY DOSE
     Route: 048
     Dates: start: 20120221, end: 20120311
  20. BALDRIANWURZEL [Concomitant]
     Indication: SLEEP DISORDER
     Dosage: 450 MG MILLIGRAM(S), DAILY DOSE
     Route: 048
     Dates: start: 20120215, end: 20120219
  21. METAMIZOLE [Concomitant]
     Dosage: 15 GTT DROP(S), DAILY DOSE
     Route: 048
     Dates: start: 20120218, end: 20120219
  22. SPIRONOLACTONE [Concomitant]
     Indication: CARDIAC FAILURE CONGESTIVE
     Dosage: 25 MG MILLIGRAM(S), DAILY DOSE
     Route: 048
     Dates: start: 20120217, end: 20120217
  23. SPIRONOLACTONE [Concomitant]
     Indication: HYPERALDOSTERONISM
  24. POLYHEXANIDE [Concomitant]
     Indication: SEPSIS
     Dosage: 2 DF DOSAGE FORM, UNKNOWN
     Route: 003
     Dates: start: 20120213, end: 20120220
  25. TOREM [Concomitant]
     Indication: RENAL FAILURE CHRONIC
     Dosage: 10 MG MILLIGRAM(S), DAILY DOSE
     Route: 048
     Dates: start: 20120313, end: 20120315
  26. TOREM [Concomitant]
     Indication: CARDIAC FAILURE CONGESTIVE
     Dosage: 60 MG MILLIGRAM(S), DAILY DOSE
     Route: 048
     Dates: start: 20120327
  27. FUROSEMIDE [Concomitant]
     Indication: CARDIAC FAILURE CONGESTIVE
     Dosage: 80 MG MILLIGRAM(S), DAILY DOSE
     Route: 042
     Dates: start: 20120315, end: 20120315
  28. FUROSEMIDE [Concomitant]
     Dosage: 120 MG MILLIGRAM(S), DAILY DOSE
     Route: 042
     Dates: start: 20120316, end: 20120318
  29. FUROSEMIDE [Concomitant]
     Dosage: 80 MG MILLIGRAM(S), DAILY DOSE
     Route: 042
     Dates: start: 20120319, end: 20120319
  30. FUROSEMIDE [Concomitant]
     Dosage: 120 MG MILLIGRAM(S), DAILY DOSE
     Route: 042
     Dates: start: 20120320, end: 20120320
  31. FUROSEMIDE [Concomitant]
     Dosage: 180 MG MILLIGRAM(S), DAILY DOSE
     Route: 042
     Dates: start: 20120321, end: 20120325
  32. FUROSEMIDE [Concomitant]
     Dosage: 120 MG MILLIGRAM(S), DAILY DOSE
     Route: 042
     Dates: start: 20120326, end: 20120326
  33. ASS [Concomitant]
     Indication: CORONARY ARTERY DISEASE
     Dosage: 100 MG MILLIGRAM(S), DAILY DOSE
     Route: 048
     Dates: start: 20120314
  34. L-THYROX [Concomitant]
     Indication: HYPOTHYROIDISM
     Dosage: 100 ?G MICROGRAM(S), DAILY DOSE
     Route: 048
     Dates: start: 20120314
  35. L-THYROX [Concomitant]
     Dosage: 75 ?G MICROGRAM(S), DAILY DOSE
     Route: 048
     Dates: start: 201202, end: 20120313
  36. ALDACTONE [Concomitant]
     Indication: CARDIAC FAILURE CONGESTIVE
     Dosage: 25 MG MILLIGRAM(S), DAILY DOSE
     Route: 048
     Dates: start: 20120319, end: 20120320
  37. ALDACTONE [Concomitant]
     Dosage: 50 MG MILLIGRAM(S), DAILY DOSE
     Route: 048
     Dates: start: 20120321, end: 20120326
  38. HYDROCHLOROTHIAZIDE [Concomitant]
     Indication: CARDIAC FAILURE CONGESTIVE
     Dosage: 25 MG MILLIGRAM(S), DAILY DOSE
     Route: 048
     Dates: start: 20120321
  39. VITAMIN B KOMPLEX [Concomitant]
     Indication: ANAEMIA
     Dosage: 1 DF DOSAGE FORM, DAILY DOSE
     Dates: start: 20120321
  40. ARANESP [Concomitant]
     Indication: ANAEMIA
     Dosage: 40 ?G MICROGRAM(S), QW
     Route: 058
     Dates: start: 20120313
  41. MARCUMAR [Concomitant]
     Dosage: UNK
     Dates: start: 200911

REACTIONS (7)
  - Death [Fatal]
  - Thrombophlebitis [Recovered/Resolved]
  - Epistaxis [Recovered/Resolved]
  - Pain in extremity [Recovered/Resolved]
  - Hypotension [Recovered/Resolved]
  - Wrong technique in drug usage process [Unknown]
  - Incorrect drug administration rate [Unknown]
